FAERS Safety Report 4652127-7 (Version None)
Quarter: 2005Q2

REPORT INFORMATION
  Report Type: 
  Country: None (occurrence: None)
  Receive Date: 20050502
  Receipt Date: 20050502
  Transmission Date: 20051028
  Serious: No
  Sender: FDA-Public Use
  Company Number: None

PATIENT
  Sex: Male
  Weight: 64 kg

DRUGS (8)
  1. RITUXIMAB [Suspect]
     Indication: BURKITT'S LYMPHOMA
     Dosage: IV 375 MG/M2 ON DAY -2 AND 0,
     Route: 042
     Dates: start: 20050317
  2. RITUXIMAB [Suspect]
     Indication: LEUKAEMIA
     Dosage: IV 375 MG/M2 ON DAY -2 AND 0,
     Route: 042
     Dates: start: 20050317
  3. PREDNISONE TAB [Suspect]
     Dosage: 60 MG/M2 DAY 0-4 INCLUSIVE THEN TAPER TO 0 OVER 3 DAYS
  4. METHOTREXATE [Suspect]
     Dosage: 8000 MG/M2 AS IV INFUSION OVER 4 HRS ON DAY 0
     Route: 042
  5. LECOVORIN [Suspect]
     Dosage: 15 MG/M2 G 6 HRS FOR TOTAL OF 12 DOSES OR AS REQUIRED
  6. CYCLOPHOSPHAMIDE [Suspect]
     Dosage: IV 1000 MG/M2/DAY ON DAYS 1-3
     Route: 042
  7. DOXORUBICIN [Suspect]
     Dosage: IV 60 MG/M2 ON DAY 1
     Route: 042
  8. G-CSF [Suspect]
     Dosage: SQ 5 MCG/KG/DAY DAYS 6-20 INCLUSIVE
     Route: 058

REACTIONS (1)
  - HYPERSENSITIVITY [None]
